FAERS Safety Report 5640887-8 (Version None)
Quarter: 2008Q1

REPORT INFORMATION
  Report Type: 
  Country: None (occurrence: None)
  Receive Date: 20080227
  Receipt Date: 20080218
  Transmission Date: 20080703
  Serious: Yes (Hospitalization)
  Sender: FDA-Public Use
  Company Number: B0506467A

PATIENT
  Age: 61 Year
  Sex: Female
  Weight: 57.5 kg

DRUGS (6)
  1. LAPATINIB [Suspect]
     Dosage: 1250MG PER DAY
     Route: 048
     Dates: start: 20080118, end: 20080201
  2. CAPECITABINE [Suspect]
     Dosage: 1650MG TWICE PER DAY
     Route: 048
     Dates: start: 20080118, end: 20080129
  3. PROPRANOLOL [Concomitant]
     Indication: HYPERTENSION
     Dosage: 40MG PER DAY
     Route: 048
     Dates: start: 20060101
  4. LOPERAMIDE HCL [Concomitant]
     Dosage: 2MG AS REQUIRED
     Route: 048
     Dates: start: 20080121, end: 20080213
  5. CYCLIZINE [Concomitant]
     Indication: VOMITING
     Dosage: 50MG TWICE PER DAY
     Route: 048
     Dates: start: 20080114, end: 20080211
  6. DEXAMETHASONE TAB [Concomitant]
     Dosage: 1MG PER DAY
     Route: 048
     Dates: start: 20080103

REACTIONS (11)
  - DEHYDRATION [None]
  - DIARRHOEA [None]
  - DRUG TOXICITY [None]
  - HYPOTENSION [None]
  - MOUTH ULCERATION [None]
  - MUCOSAL INFLAMMATION [None]
  - ORAL PAIN [None]
  - PAIN IN EXTREMITY [None]
  - PALMAR-PLANTAR ERYTHRODYSAESTHESIA SYNDROME [None]
  - SKIN ULCER [None]
  - VOMITING [None]
